FAERS Safety Report 15358005 (Version 3)
Quarter: 2019Q2

REPORT INFORMATION
  Report Type: Report from Study
  Country: CA (occurrence: CA)
  Receive Date: 20180906
  Receipt Date: 20190528
  Transmission Date: 20190711
  Serious: Yes (Hospitalization)
  Sender: FDA-Public Use
  Company Number: PHEH2018US037271

PATIENT
  Sex: Male
  Weight: 70.3 kg

DRUGS (3)
  1. COSENTYX [Suspect]
     Active Substance: SECUKINUMAB
     Dosage: 300 MG, Q4W
     Route: 065
     Dates: start: 20180529
  2. RAMIPRIL. [Concomitant]
     Active Substance: RAMIPRIL
     Indication: PROTEINURIA
     Dosage: 10 MG, BID
     Route: 065
  3. COSENTYX [Suspect]
     Active Substance: SECUKINUMAB
     Indication: PSORIASIS
     Dosage: 300 MG, Q4W
     Route: 065
     Dates: start: 20180124

REACTIONS (2)
  - Psoriasis [Recovering/Resolving]
  - Staphylococcal bacteraemia [Recovering/Resolving]

NARRATIVE: CASE EVENT DATE: 20180812
